FAERS Safety Report 9526786 (Version 2)
Quarter: 2013Q3

REPORT INFORMATION
  Report Type: Report from Study
  Country: US (occurrence: US)
  Receive Date: 20130916
  Receipt Date: 20130919
  Transmission Date: 20140515
  Serious: Yes (Hospitalization)
  Sender: FDA-Public Use
  Company Number: US-GLAXOSMITHKLINE-A1041609A

PATIENT
  Age: 73 Year
  Sex: Female
  Weight: 90 kg

DRUGS (17)
  1. PAZOPANIB [Suspect]
     Indication: OVARIAN CANCER
     Dosage: 600MG PER DAY
     Route: 048
     Dates: start: 20130816
  2. TOPOTECAN [Suspect]
     Indication: OVARIAN CANCER
     Dosage: .25MG PER DAY
     Route: 048
     Dates: start: 20130816
  3. HCTZ [Concomitant]
     Indication: HYPERTENSION
     Dosage: 25MG PER DAY
     Route: 048
     Dates: start: 1998
  4. SYNTHROID [Concomitant]
     Indication: HYPOTHYROIDISM
     Dosage: 50MCG PER DAY
     Dates: start: 201103
  5. POTASSIUM CHLORIDE [Concomitant]
     Indication: HYPOKALAEMIA
     Dosage: 20MEQ PER DAY
     Route: 048
     Dates: start: 20130108
  6. COUMADIN [Concomitant]
     Indication: DEEP VEIN THROMBOSIS
     Dosage: 4.5MG AT NIGHT
     Dates: start: 20130806
  7. COREG [Concomitant]
     Indication: HYPERTENSION
     Dosage: 3.125MG PER DAY
     Route: 048
     Dates: start: 2010
  8. SIMVASTATIN [Concomitant]
     Indication: HYPERCHOLESTEROLAEMIA
     Dosage: 80MG PER DAY
     Dates: start: 2009
  9. REGLAN [Concomitant]
     Indication: ABDOMINAL PAIN
     Dosage: 10MG THREE TIMES PER DAY
     Route: 048
     Dates: start: 20130312
  10. TAMOXIFEN [Concomitant]
     Indication: BREAST CANCER
     Dosage: 20MG PER DAY
     Route: 048
     Dates: start: 201007
  11. LORTAB [Concomitant]
     Indication: PAIN
     Route: 048
     Dates: start: 20130102
  12. MORPHINE [Concomitant]
     Indication: PAIN
     Dosage: 15MG AS REQUIRED
     Route: 048
     Dates: start: 20130312
  13. VENTOLIN [Concomitant]
     Indication: DYSPNOEA
     Dosage: 2PUFF AS REQUIRED
     Route: 055
     Dates: start: 201207
  14. SYMBICORT [Concomitant]
     Indication: DYSPNOEA
     Dosage: 2PUFF PER DAY
     Route: 055
  15. IMODIUM [Concomitant]
     Indication: DIARRHOEA
     Route: 048
  16. PHENERGAN [Concomitant]
     Indication: NAUSEA
     Dosage: 25MG AS REQUIRED
  17. MEGACE [Concomitant]
     Indication: DECREASED APPETITE
     Dosage: 5ML PER DAY
     Route: 048
     Dates: start: 20130823

REACTIONS (2)
  - Hypotension [Unknown]
  - Dehydration [Unknown]
